FAERS Safety Report 20596303 (Version 1)
Quarter: 2022Q1

REPORT INFORMATION
  Report Type: Spontaneous
  Country: IN (occurrence: IN)
  Receive Date: 20220315
  Receipt Date: 20220315
  Transmission Date: 20220423
  Serious: Yes (Other)
  Sender: FDA-Public Use
  Company Number: IN-NOVARTISPH-PHHY2017IN203381

PATIENT

DRUGS (2)
  1. TACROLIMUS [Suspect]
     Active Substance: TACROLIMUS
     Indication: Colitis ulcerative
     Dosage: 0.05-0.1 MG/KG, QD(GIVEN IN TWICE DAILY DIVIDED DOSES)
     Route: 048
  2. MESALAMINE [Concomitant]
     Active Substance: MESALAMINE
     Indication: Product used for unknown indication
     Dosage: 2.4 G, QD
     Route: 048

REACTIONS (3)
  - Renal failure [Recovered/Resolved]
  - Renal impairment [Recovering/Resolving]
  - Product use in unapproved indication [Unknown]
